FAERS Safety Report 19739035 (Version 1)
Quarter: 2021Q3

REPORT INFORMATION
  Report Type: Report from Study
  Country: AR (occurrence: AR)
  Receive Date: 20210824
  Receipt Date: 20210824
  Transmission Date: 20211014
  Serious: Yes (Other)
  Sender: FDA-Public Use
  Company Number: NVSC2021AR173932

PATIENT
  Sex: Female

DRUGS (1)
  1. PIQRAY [Suspect]
     Active Substance: ALPELISIB
     Indication: BREAST CANCER METASTATIC
     Dosage: 250 MG, QD
     Route: 048
     Dates: start: 20201114

REACTIONS (6)
  - Feeling abnormal [Unknown]
  - Breast cancer metastatic [Unknown]
  - Impatience [Unknown]
  - Tumour marker increased [Unknown]
  - Malignant neoplasm progression [Unknown]
  - Pneumonia [Unknown]
